FAERS Safety Report 6034728-7 (Version None)
Quarter: 2009Q1

REPORT INFORMATION
  Report Type: 
  Country: None (occurrence: None)
  Receive Date: 20090109
  Receipt Date: 20090109
  Transmission Date: 20090719
  Serious: Yes (Hospitalization, Disabling)
  Sender: FDA-Public Use
  Company Number: None

PATIENT
  Sex: Female

DRUGS (7)
  1. ZOMETA [Suspect]
     Indication: BREAST CANCER METASTATIC
     Dosage: 4 MG MONTHLY IV
     Route: 042
     Dates: start: 19980101, end: 20020101
  2. HERCEPTIN [Concomitant]
  3. TAXOTERE [Concomitant]
  4. DECADRON [Concomitant]
  5. AROMASIN [Concomitant]
  6. FAMOTIDINE [Concomitant]
  7. NEXIUM [Concomitant]

REACTIONS (3)
  - FISTULA DISCHARGE [None]
  - JAW DISORDER [None]
  - PATHOLOGICAL FRACTURE [None]
